FAERS Safety Report 4822009-6 (Version None)
Quarter: 2005Q4

REPORT INFORMATION
  Report Type: 
  Country: None (occurrence: None)
  Receive Date: 20051107
  Receipt Date: 20051102
  Transmission Date: 20060501
  Serious: Yes (Other)
  Sender: FDA-Public Use
  Company Number: JP-JNJFOC-20051100295

PATIENT
  Sex: Male

DRUGS (1)
  1. TAVANIC [Suspect]
     Route: 065

REACTIONS (2)
  - RENAL INFARCT [None]
  - RENAL PAIN [None]
